FAERS Safety Report 22314934 (Version 2)
Quarter: 2023Q2

REPORT INFORMATION
  Report Type: Report from Study
  Country: US (occurrence: US)
  Receive Date: 20230512
  Receipt Date: 20230515
  Transmission Date: 20230722
  Serious: Yes (Hospitalization)
  Sender: FDA-Public Use
  Company Number: US-JNJFOC-20230357498

PATIENT
  Age: 52 Year
  Sex: Female
  Weight: 97 kg

DRUGS (11)
  1. CILTACABTAGENE AUTOLEUCEL [Suspect]
     Active Substance: CILTACABTAGENE AUTOLEUCEL
     Indication: Plasma cell myeloma
     Dosage: 0.75 X10^6 CAR-POSITIVE VIABLE T CELLS/KG
     Route: 042
     Dates: start: 20211123, end: 20211123
  2. DARATUMUMAB [Suspect]
     Active Substance: DARATUMUMAB
     Indication: Plasma cell myeloma
     Dosage: (15 ML)
     Route: 058
     Dates: start: 20210916, end: 20211025
  3. FLUDARABINE [Concomitant]
     Active Substance: FLUDARABINE PHOSPHATE
     Indication: Plasma cell myeloma
     Dosage: (109.4 ML)
     Route: 042
     Dates: start: 20211118, end: 20211120
  4. CYCLOPHOSPHAMIDE [Concomitant]
     Active Substance: CYCLOPHOSPHAMIDE
     Indication: Plasma cell myeloma
     Dosage: (110 ML)
     Route: 042
     Dates: start: 20211118, end: 20211120
  5. ORTHO TRI CYCLEN [Concomitant]
     Active Substance: ETHINYL ESTRADIOL\NORGESTIMATE
     Indication: Contraception
     Route: 048
     Dates: start: 20100119
  6. APIXABAN [Concomitant]
     Active Substance: APIXABAN
     Indication: Thrombosis prophylaxis
     Route: 048
     Dates: start: 20200102
  7. ERGOCALCIFEROL [Concomitant]
     Active Substance: ERGOCALCIFEROL
     Indication: Nutritional supplementation
     Route: 048
     Dates: start: 20200604
  8. FAMOTIDINE [Concomitant]
     Active Substance: FAMOTIDINE
     Indication: Gastrointestinal disorder therapy
     Route: 048
     Dates: start: 20210916
  9. ACYCLOVIR [Concomitant]
     Active Substance: ACYCLOVIR
     Indication: Antiviral prophylaxis
     Route: 048
     Dates: start: 20211118
  10. LEVETIRACETAM [Concomitant]
     Active Substance: LEVETIRACETAM
     Indication: Seizure prophylaxis
     Route: 048
     Dates: start: 20211118
  11. DAPSONE [Concomitant]
     Active Substance: DAPSONE
     Indication: Infection prophylaxis
     Route: 048
     Dates: start: 20211223

REACTIONS (1)
  - Metapneumovirus pneumonia [Recovered/Resolved]

NARRATIVE: CASE EVENT DATE: 20230314
